FAERS Safety Report 6637060-3 (Version None)
Quarter: 2010Q1

REPORT INFORMATION
  Report Type: 
  Country: None (occurrence: None)
  Receive Date: 20100310
  Receipt Date: 20100217
  Transmission Date: 20100710
  Serious: Yes (Hospitalization)
  Sender: FDA-Public Use
  Company Number: ADE2008-0184

PATIENT
  Age: 1 Hour
  Sex: Male
  Weight: 2.18 kg

DRUGS (3)
  1. FLUOXETINE [Suspect]
     Indication: DEPRESSION
     Dosage: 20 MG QD TRANSPLACENTAL
     Route: 064
     Dates: start: 20061101, end: 20070813
  2. FLUOXETINE [Suspect]
     Indication: DEPRESSION
     Dosage: 20 MG QD TRANSMAMMARY
     Route: 063
     Dates: start: 20070101
  3. SYTRON [Concomitant]

REACTIONS (4)
  - DRUG EXPOSURE VIA BREAST MILK [None]
  - MATERNAL DRUGS AFFECTING FOETUS [None]
  - SMALL FOR DATES BABY [None]
  - WEIGHT GAIN POOR [None]
